FAERS Safety Report 8793883 (Version 2)
Quarter: 2012Q4

REPORT INFORMATION
  Report Type: 
  Country: JP (occurrence: JP)
  Receive Date: 20120918
  Receipt Date: 20121026
  Transmission Date: 20130627
  Serious: Yes (Other)
  Sender: FDA-Public Use
  Company Number: JP-009507513-1209JPN006268

PATIENT

DRUGS (4)
  1. PEGINTRON [Suspect]
     Dosage: Daily dosage unknown
     Route: 058
  2. REBETOL [Suspect]
     Dosage: Daily dosage unknown
     Route: 048
  3. ZYLORIC [Suspect]
     Dosage: Daily dosage unknown
     Route: 048
  4. TELAPREVIR [Concomitant]
     Dosage: Daily dosage unknown
     Route: 048

REACTIONS (1)
  - Drug reaction with eosinophilia and systemic symptoms [Unknown]
